FAERS Safety Report 15353502 (Version 2)
Quarter: 2018Q3

REPORT INFORMATION
  Report Type: Report from Study
  Country: None (occurrence: DE)
  Receive Date: 20180905
  Receipt Date: 20180914
  Transmission Date: 20181010
  Serious: Yes (Other)
  Sender: FDA-Public Use
  Company Number: DE-BAUSCH-BL-2018-017613

PATIENT
  Sex: Female

DRUGS (1)
  1. KYNTHEUM [Suspect]
     Active Substance: BRODALUMAB
     Indication: PSORIASIS
     Route: 058
     Dates: start: 20180314, end: 20180509

REACTIONS (2)
  - Pain in extremity [Not Recovered/Not Resolved]
  - Marine Lenhart syndrome [Not Recovered/Not Resolved]

NARRATIVE: CASE EVENT DATE: 20180509
